FAERS Safety Report 6816473-0 (Version None)
Quarter: 2010Q3

REPORT INFORMATION
  Report Type: 
  Country: None (occurrence: None)
  Receive Date: 20100705
  Receipt Date: 20100621
  Transmission Date: 20110219
  Serious: Yes (Other)
  Sender: FDA-Public Use
  Company Number: US-JNJFOC-20100606746

PATIENT
  Age: 53 Year
  Sex: Female

DRUGS (2)
  1. TYLENOL (CAPLET) [Suspect]
     Route: 048
  2. TYLENOL (CAPLET) [Suspect]
     Indication: NECK PAIN
     Route: 048

REACTIONS (3)
  - HEADACHE [None]
  - HYPERSOMNIA [None]
  - PRODUCT QUALITY ISSUE [None]
